FAERS Safety Report 21376052 (Version 2)
Quarter: 2025Q2

REPORT INFORMATION
  Report Type: Spontaneous
  Country: US (occurrence: US)
  Receive Date: 20220926
  Receipt Date: 20250410
  Transmission Date: 20250716
  Serious: No
  Sender: BIOVITRUM
  Company Number: US-BIOVITRUM-2022US09167

PATIENT
  Age: 39 Year
  Sex: Female

DRUGS (3)
  1. KINERET [Suspect]
     Active Substance: ANAKINRA
     Indication: Autoinflammatory disease
     Dates: start: 201904
  2. KINERET [Suspect]
     Active Substance: ANAKINRA
     Dates: start: 20190408
  3. KINERET [Suspect]
     Active Substance: ANAKINRA
     Route: 058

REACTIONS (6)
  - Off label use [Not Recovered/Not Resolved]
  - Cardiac disorder [Unknown]
  - Musculoskeletal chest pain [Unknown]
  - Pleurisy [Unknown]
  - Pain [Unknown]
  - Electrocardiogram abnormal [Recovering/Resolving]

NARRATIVE: CASE EVENT DATE: 20190401
